FAERS Safety Report 6430311-X (Version None)
Quarter: 2009Q4

REPORT INFORMATION
  Report Type: 
  Country: None (occurrence: None)
  Receive Date: 20091106
  Receipt Date: 20091102
  Transmission Date: 20100525
  Serious: Yes (Death, Hospitalization)
  Sender: FDA-Public Use
  Company Number: US-BAYER-200936248NA

PATIENT
  Age: 52 Year
  Sex: Female
  Weight: 42 kg

DRUGS (7)
  1. SORAFENIB [Suspect]
     Indication: NON-SMALL CELL LUNG CANCER STAGE IV
     Dosage: TOTAL DAILY DOSE: 800 MG  UNIT DOSE: 200 MG
     Route: 048
     Dates: start: 20091007, end: 20091011
  2. POTASSIUM CHLORIDE [Concomitant]
     Dosage: TOTAL DAILY DOSE: 10 MEQ
     Route: 048
     Dates: start: 20090921
  3. MARINOL [Concomitant]
     Dosage: TOTAL DAILY DOSE: 10 MG
     Route: 048
     Dates: start: 20090925
  4. TYLENOL [Concomitant]
     Route: 048
     Dates: start: 20090925
  5. IBUPROFEN [Concomitant]
     Route: 048
     Dates: start: 20090925
  6. MORPHINE SULFATE [Concomitant]
     Dosage: AS USED: 4 MG/ML
     Route: 042
  7. PROTONIX [Concomitant]
     Dosage: TOTAL DAILY DOSE: 40 MG
     Route: 042

REACTIONS (7)
  - DECREASED APPETITE [None]
  - DEHYDRATION [None]
  - HYPONATRAEMIA [None]
  - LEUKOCYTOSIS [None]
  - NAUSEA [None]
  - NON-SMALL CELL LUNG CANCER [None]
  - URINARY TRACT INFECTION [None]
